FAERS Safety Report 10286220 (Version 1)
Quarter: 2014Q3

REPORT INFORMATION
  Report Type: Spontaneous
  Country: US (occurrence: None)
  Receive Date: 20140707
  Receipt Date: 20140707
  Transmission Date: 20150326
  Serious: No
  Sender: FDA-Public Use
  Company Number: None

PATIENT
  Age: 53 Year
  Sex: Female
  Weight: 178 kg

DRUGS (25)
  1. DAPTOMYCIN [Suspect]
     Active Substance: DAPTOMYCIN
     Indication: PSOAS ABSCESS
     Route: 042
     Dates: start: 20140523, end: 20140623
  2. CLINDAMYCIN [Concomitant]
     Active Substance: CLINDAMYCIN\CLINDAMYCIN PHOSPHATE
  3. LANTUS [Concomitant]
     Active Substance: INSULIN GLARGINE
  4. MORPHINE SR [Concomitant]
     Active Substance: MORPHINE
  5. ACETAMINOPHIN [Concomitant]
  6. ALBUTEROL INHALER [Concomitant]
     Active Substance: ALBUTEROL
  7. TUMS [Concomitant]
     Active Substance: CALCIUM CARBONATE
  8. AMLODIPINE [Concomitant]
     Active Substance: AMLODIPINE BESYLATE
  9. BISACODYL SUPPOSITORY [Concomitant]
     Active Substance: BISACODYL
  10. DOCUSATE/SENNA [Concomitant]
  11. VITAMIN D2 [Concomitant]
     Active Substance: ERGOCALCIFEROL
  12. DAPTOMYCIN [Suspect]
     Active Substance: DAPTOMYCIN
     Indication: STAPHYLOCOCCAL INFECTION
     Route: 042
     Dates: start: 20140523, end: 20140623
  13. VANCOMYCIN [Concomitant]
     Active Substance: VANCOMYCIN
  14. ENOXAPARIN [Concomitant]
     Active Substance: ENOXAPARIN
  15. HYDRALAZINE [Concomitant]
     Active Substance: HYDRALAZINE HYDROCHLORIDE
  16. RIFAMPIN. [Concomitant]
     Active Substance: RIFAMPIN
  17. HUMALOG [Concomitant]
     Active Substance: INSULIN LISPRO
  18. SIMETHICONE [Concomitant]
     Active Substance: DIMETHICONE\SILICON DIOXIDE\SIMETHICONE
  19. ATENOLOL. [Concomitant]
     Active Substance: ATENOLOL
  20. ATORVASTAIN [Concomitant]
  21. LEVOTHYROXINE [Concomitant]
     Active Substance: LEVOTHYROXINE
  22. ASPIRIN. [Concomitant]
     Active Substance: ASPIRIN
  23. MORPHINE IR [Concomitant]
     Active Substance: MORPHINE
  24. MIRALAX [Concomitant]
     Active Substance: POLYETHYLENE GLYCOL 3350
  25. TRAZODONE [Concomitant]
     Active Substance: TRAZODONE HYDROCHLORIDE

REACTIONS (1)
  - Blood creatine phosphokinase increased [None]

NARRATIVE: CASE EVENT DATE: 20140623
